FAERS Safety Report 24122703 (Version 1)
Quarter: 2024Q3

REPORT INFORMATION
  Report Type: Spontaneous
  Country: BR (occurrence: BR)
  Receive Date: 20240723
  Receipt Date: 20240723
  Transmission Date: 20241017
  Serious: Yes (Other)
  Sender: SANOFI AVENTIS
  Company Number: BR-SA-SAC20240704000352

PATIENT
  Age: 76 Year
  Sex: Female

DRUGS (7)
  1. LANTUS SOLOSTAR [Suspect]
     Active Substance: INSULIN GLARGINE
     Indication: Type 2 diabetes mellitus
     Dosage: 16 U
     Route: 058
     Dates: start: 2018
  2. APIDRA [Suspect]
     Active Substance: INSULIN GLULISINE
     Indication: Type 2 diabetes mellitus
     Dosage: UNK; 6 OR 4
     Dates: start: 2019
  3. THIOCTACID [THIOCTIC ACID] [Concomitant]
     Dosage: 1 DF, QD
     Route: 048
     Dates: start: 202405
  4. PURAN [Concomitant]
     Active Substance: LEVOTHYROXINE SODIUM
     Indication: Thyroid disorder
     Dosage: 1 DF, QD
     Route: 048
  5. FUROSEMIDE [Concomitant]
     Active Substance: FUROSEMIDE
     Indication: Polyuria
     Dosage: 1 DF, QD
     Route: 048
     Dates: start: 2022
  6. ENALAPRIL [Concomitant]
     Active Substance: ENALAPRIL
     Indication: Hypertension
     Dosage: 1 DF, QD
     Route: 048
     Dates: start: 2022
  7. VENAFLON [Concomitant]
     Indication: Cardiovascular disorder
     Dosage: 1 DF, QD
     Route: 048
     Dates: start: 2021

REACTIONS (4)
  - Renal failure [Unknown]
  - Chronic kidney disease [Unknown]
  - Nervousness [Unknown]
  - Product storage error [Unknown]

NARRATIVE: CASE EVENT DATE: 20220101
